FAERS Safety Report 9291191 (Version 1)
Quarter: 2012Q4

REPORT INFORMATION
  Report Type: Spontaneous
  Country: US (occurrence: None)
  Receive Date: 20121123
  Receipt Date: 20121123
  Transmission Date: 20130627
  Serious: Yes (Death, Hospitalization)
  Sender: FDA-Public Use
  Company Number: DKLU1086288

PATIENT
  Age: 9 Month
  Sex: Male
  Weight: 7.53 kg

DRUGS (12)
  1. SABRIL [Suspect]
     Indication: INFANTILE SPASMS
     Dates: start: 20120606
  2. SABRIL [Suspect]
     Indication: INFANTILE SPASMS
  3. VALIUM [Concomitant]
  4. TOPAMAX (TOPIRAMATE) [Concomitant]
  5. THIAMINE [Concomitant]
  6. RIBOFLAVIN [Concomitant]
  7. RANITIDINE (RANITIDINE) [Concomitant]
  8. MIRALAX [Concomitant]
  9. LEVOCARNITINE [Concomitant]
  10. COENZYME [Concomitant]
  11. TYLENOL (PARACETAMOL) [Concomitant]
  12. NYSTATIN CREAM [Concomitant]

REACTIONS (16)
  - Respiratory distress [None]
  - Pyrexia [None]
  - Opisthotonus [None]
  - Hyperhidrosis [None]
  - Irritability [None]
  - Convulsion [None]
  - Fungal skin infection [None]
  - Device leakage [None]
  - Tachypnoea [None]
  - Tachycardia [None]
  - Mitochondrial encephalomyopathy [None]
  - Muscle spasticity [None]
  - Drug ineffective [None]
  - Feeding disorder [None]
  - Discomfort [None]
  - Disease progression [None]
